FAERS Safety Report 21815114 (Version 2)
Quarter: 2023Q1

REPORT INFORMATION
  Report Type: Report from Study
  Country: US (occurrence: US)
  Receive Date: 20230104
  Receipt Date: 20230213
  Transmission Date: 20230418
  Serious: No
  Sender: FDA-Public Use
  Company Number: US-BRISTOL-MYERS SQUIBB COMPANY-2023-000943

PATIENT
  Age: 74 Year
  Sex: Female
  Weight: 68 kg

DRUGS (4)
  1. SOTYKTU [Suspect]
     Active Substance: DEUCRAVACITINIB
     Indication: Psoriasis
     Dosage: DOSE : 1 TABLET;     FREQ : EVERY DAY
     Route: 048
     Dates: start: 20221221
  2. SOTYKTU [Suspect]
     Active Substance: DEUCRAVACITINIB
     Route: 048
     Dates: start: 20221228
  3. ROBITUSSIN (GUAIFENESIN) [Suspect]
     Active Substance: GUAIFENESIN
     Indication: Cough
  4. GEMFIBROZIL [Concomitant]
     Active Substance: GEMFIBROZIL
     Indication: Blood cholesterol

REACTIONS (8)
  - Back pain [Unknown]
  - Headache [Unknown]
  - Rash [Unknown]
  - Upper-airway cough syndrome [Unknown]
  - Palpitations [Unknown]
  - Psoriasis [Unknown]
  - Arthralgia [Unknown]
  - Arthralgia [Unknown]

NARRATIVE: CASE EVENT DATE: 20221225
